FAERS Safety Report 6839291-6 (Version None)
Quarter: 2010Q3

REPORT INFORMATION
  Report Type: 
  Country: None (occurrence: None)
  Receive Date: 20100707
  Receipt Date: 20100622
  Transmission Date: 20110219
  Serious: Yes (Other)
  Sender: FDA-Public Use
  Company Number: 2010-1537

PATIENT
  Age: 26 Year
  Sex: Female
  Weight: 60 kg

DRUGS (4)
  1. SOMATULINE DEPOT [Suspect]
     Indication: INSULINOMA
     Dosage: 120 MG (120 MG, 1 IN 28 D); SUBCUTANEOUS, INJECTION DELAYED, THEN REDUCED TO 60 MG
     Route: 058
     Dates: start: 20100311
  2. SOMATULINE DEPOT [Suspect]
     Indication: INSULINOMA
     Dosage: 60 MG (60 MG, 1 IN 29 D); SUBCUTANEOUS
     Route: 058
     Dates: start: 20100501
  3. LAMICTAL 200 (LAMOTRIGINE) [Concomitant]
  4. MINIDRIL (EUGYNON) [Concomitant]

REACTIONS (5)
  - ABDOMINAL PAIN [None]
  - CELL DEATH [None]
  - GALLBLADDER DISORDER [None]
  - HEPATITIS ACUTE [None]
  - HYPOGLYCAEMIA [None]
